FAERS Safety Report 5004734-X (Version None)
Quarter: 2006Q1

REPORT INFORMATION
  Report Type: 
  Country: None (occurrence: None)
  Receive Date: 20060321
  Receipt Date: 20060208
  Transmission Date: 20060701
  Serious: No
  Sender: FDA-Public Use
  Company Number: 2006US000324

PATIENT
  Sex: Female

DRUGS (6)
  1. VESICARE [Suspect]
     Dosage: 5 MG, ORAL
     Route: 048
     Dates: start: 20051201, end: 20060201
  2. SYNTHROID [Suspect]
  3. PREMARIN [Concomitant]
  4. NOVOLOG [Concomitant]
  5. NOVOLIN N [Concomitant]
  6. VITAMIN B-12 [Concomitant]

REACTIONS (1)
  - RASH [None]
